FAERS Safety Report 12058861 (Version 1)
Quarter: 2016Q1

REPORT INFORMATION
  Report Type: Spontaneous
  Country: US (occurrence: None)
  Receive Date: 20160209
  Receipt Date: 20160209
  Transmission Date: 20160526
  Serious: No
  Sender: FDA-Public Use
  Company Number: None

PATIENT
  Age: 63 Year
  Sex: Female
  Weight: 55.79 kg

DRUGS (5)
  1. FLAXSEED [Concomitant]
     Active Substance: FLAX SEED
  2. MULTIVITAMIN [Concomitant]
     Active Substance: VITAMINS
  3. VITAMIN D [Concomitant]
     Active Substance: CHOLECALCIFEROL
  4. CIPRO [Suspect]
     Active Substance: CIPROFLOXACIN HYDROCHLORIDE
     Indication: URINARY TRACT INFECTION
     Dates: start: 20151012, end: 20151019
  5. PROBIOTICS [Concomitant]
     Active Substance: PROBIOTICS NOS

REACTIONS (3)
  - Ear pruritus [None]
  - Pruritus [None]
  - Rash [None]

NARRATIVE: CASE EVENT DATE: 20151017
